FAERS Safety Report 5612288-X (Version None)
Quarter: 2008Q1

REPORT INFORMATION
  Report Type: 
  Country: None (occurrence: None)
  Receive Date: 20080130
  Receipt Date: 20080114
  Transmission Date: 20080703
  Serious: Yes (Other)
  Sender: FDA-Public Use
  Company Number: B0505023A

PATIENT
  Age: 59 Year
  Sex: Female

DRUGS (2)
  1. NICOTINE POLACRILEX [Suspect]
     Dosage: 10 GUM/PER DAY; TRANSBUCCAL
     Route: 002
  2. PAROXETINE HYDROCHLORIDE [Concomitant]

REACTIONS (4)
  - DRUG DEPENDENCE [None]
  - HEADACHE [None]
  - PHARYNGOLARYNGEAL PAIN [None]
  - TOOTHACHE [None]
